FAERS Safety Report 8368648-X (Version None)
Quarter: 2012Q2

REPORT INFORMATION
  Report Type: 
  Country: None (occurrence: None)
  Receive Date: 20120518
  Receipt Date: 20120509
  Transmission Date: 20120825
  Serious: Yes (Hospitalization)
  Sender: FDA-Public Use
  Company Number: US-BIOGENIDEC-2012BI016584

PATIENT
  Sex: Male

DRUGS (3)
  1. TYSABRI [Suspect]
     Route: 042
  2. AVONEX [Concomitant]
     Indication: MULTIPLE SCLEROSIS
     Route: 030
     Dates: start: 20021011
  3. TYSABRI [Suspect]
     Indication: MULTIPLE SCLEROSIS
     Route: 042
     Dates: start: 20091102, end: 20110217

REACTIONS (1)
  - MULTIPLE SCLEROSIS RELAPSE [None]
